FAERS Safety Report 10168020 (Version 1)
Quarter: 2014Q2

REPORT INFORMATION
  Report Type: Spontaneous
  Country: US (occurrence: US)
  Receive Date: 20140512
  Receipt Date: 20140512
  Transmission Date: 20141212
  Serious: No
  Sender: FDA-Public Use
  Company Number: US-009507513-1405USA004892

PATIENT
  Age: 48 Year
  Sex: Male

DRUGS (5)
  1. DULERA [Suspect]
     Indication: ASTHMA
     Route: 055
  2. SINGULAIR [Suspect]
     Indication: ASTHMA
     Route: 048
  3. THEOPHYLLINE [Suspect]
     Route: 048
  4. SPIRIVA [Suspect]
     Indication: ASTHMA
  5. XOLAIR [Suspect]
     Indication: ASTHMA

REACTIONS (1)
  - Drug ineffective [Recovering/Resolving]
